FAERS Safety Report 6643301 (Version 3)
Quarter: 2014Q1

REPORT INFORMATION
  Report Type: Spontaneous
  Country: GB (occurrence: GB)
  Receive Date: 20080519
  Receipt Date: 20140212
  Transmission Date: 20141002
  Serious: Yes (Hospitalization, Disabling, Other)
  Sender: FDA-Public Use
  Company Number: GB-TEVA-171333ISR

PATIENT
  Age: 47 Year
  Sex: Male

DRUGS (2)
  1. SIMVASTATIN [Suspect]
     Indication: HYPERCHOLESTEROLAEMIA
     Dosage: 40 MILLIGRAM DAILY;
     Dates: start: 20080222
  2. SIMVASTATIN [Suspect]
     Indication: HYPERLIPIDAEMIA

REACTIONS (1)
  - Tendon rupture [Recovered/Resolved]
